FAERS Safety Report 5897457-6 (Version None)
Quarter: 2008Q3

REPORT INFORMATION
  Report Type: 
  Country: None (occurrence: None)
  Receive Date: 20080925
  Receipt Date: 20080714
  Transmission Date: 20090109
  Serious: Yes (Hospitalization)
  Sender: FDA-Public Use
  Company Number: US-BRISTOL-MYERS SQUIBB COMPANY-13537238

PATIENT
  Age: 74 Year
  Sex: Male

DRUGS (9)
  1. APIXABAN [Suspect]
     Indication: ACUTE CORONARY SYNDROME
     Route: 048
     Dates: start: 20060922
  2. METOPROLOL TARTRATE [Suspect]
     Route: 048
     Dates: start: 20060922, end: 20061006
  3. LOTREL [Suspect]
     Dosage: DOSE = 5-20 MG
     Route: 048
     Dates: start: 20060922, end: 20061006
  4. ASPIRIN [Concomitant]
     Dates: start: 20060817
  5. PLAVIX [Concomitant]
     Route: 048
     Dates: start: 20060730
  6. ALLOPURINOL [Concomitant]
     Route: 048
     Dates: start: 20060717
  7. ZETIA [Concomitant]
     Route: 048
     Dates: start: 20060717
  8. ISOSORBIDE MONONITRATE [Concomitant]
     Dates: start: 20060717
  9. FLOMAX [Concomitant]
     Dates: start: 20060925

REACTIONS (1)
  - SICK SINUS SYNDROME [None]
